FAERS Safety Report 7241334-5 (Version None)
Quarter: 2011Q1

REPORT INFORMATION
  Report Type: 
  Country: None (occurrence: None)
  Receive Date: 20110124
  Receipt Date: 20110113
  Transmission Date: 20110831
  Serious: Yes (Other)
  Sender: FDA-Public Use
  Company Number: US-SANOFI-AVENTIS-2011SA003266

PATIENT
  Age: 77 Year
  Sex: Female

DRUGS (2)
  1. AVAPRO [Concomitant]
  2. MULTAQ [Suspect]
     Indication: ATRIAL FIBRILLATION
     Route: 048
     Dates: start: 20091201

REACTIONS (3)
  - POLLAKIURIA [None]
  - ABDOMINAL DISTENSION [None]
  - RENAL IMPAIRMENT [None]
